FAERS Safety Report 22611606 (Version 3)
Quarter: 2023Q4

REPORT INFORMATION
  Report Type: Spontaneous
  Country: FR (occurrence: FR)
  Receive Date: 20230616
  Receipt Date: 20231130
  Transmission Date: 20240110
  Serious: Yes (Death, Life-Threatening, Hospitalization, Other)
  Sender: FDA-Public Use
  Company Number: None

PATIENT
  Age: 61 Year
  Sex: Male
  Weight: 71 kg

DRUGS (17)
  1. ABECMA [Suspect]
     Active Substance: IDECABTAGENE VICLEUCEL
     Indication: Plasma cell myeloma
     Dosage: 260- 500 X 1000000 CELLULES, DISPERSION POUR PERFUSION
     Route: 042
     Dates: start: 20230329
  2. FLUDARABINE PHOSPHATE [Concomitant]
     Active Substance: FLUDARABINE PHOSPHATE
     Indication: Plasma cell myeloma
     Dosage: 51.6 MG ON D1, D2 AND D3
     Route: 042
     Dates: start: 20230324, end: 20230326
  3. CYCLOPHOSPHAMIDE [Concomitant]
     Active Substance: CYCLOPHOSPHAMIDE
     Indication: Plasma cell myeloma
     Dosage: 516 MG IV ON D1, D2 AND D3
     Route: 042
     Dates: start: 20230324, end: 20230326
  4. OXYCODONE [Concomitant]
     Active Substance: OXYCODONE
     Dosage: SUSTAINED RELEASE 30 MG TABLET (UNSPECIFIED TRADE NAME) 1 TABLET IN THE MORNING AND THE EVENING, PER
     Route: 048
  5. OXYCODONE HYDROCHLORIDE [Concomitant]
     Active Substance: OXYCODONE HYDROCHLORIDE
     Indication: Pain
     Route: 048
  6. LYRICA [Concomitant]
     Active Substance: PREGABALIN
     Route: 048
  7. POMALIDOMIDE [Concomitant]
     Active Substance: POMALIDOMIDE
  8. DEXAMETHASONE ACETATE [Concomitant]
     Active Substance: DEXAMETHASONE ACETATE
  9. VALACYCLOVIR HYDROCHLORIDE [Concomitant]
     Active Substance: VALACYCLOVIR HYDROCHLORIDE
     Route: 048
     Dates: end: 20230602
  10. ATOVAQUONE [Concomitant]
     Active Substance: ATOVAQUONE
     Route: 048
     Dates: end: 20230602
  11. AMOXICILLIN [Concomitant]
     Active Substance: AMOXICILLIN
     Route: 048
     Dates: end: 20230602
  12. NICARDIPINE HYDROCHLORIDE [Concomitant]
     Active Substance: NICARDIPINE HYDROCHLORIDE
     Route: 048
  13. PERINDOPRIL ARGININE [Concomitant]
     Active Substance: PERINDOPRIL ARGININE
     Route: 048
  14. DULOXETINE [Concomitant]
     Active Substance: DULOXETINE
     Dosage: 2 CAPSULES IN THE MORNING, PER OS
     Route: 048
  15. ELIQUIS [Concomitant]
     Active Substance: APIXABAN
     Route: 048
  16. ALLOPURINOL [Concomitant]
     Active Substance: ALLOPURINOL
     Route: 048
  17. PIPERACILLIN SODIUM\TAZOBACTAM SODIUM [Concomitant]
     Active Substance: PIPERACILLIN SODIUM\TAZOBACTAM SODIUM
     Indication: Febrile bone marrow aplasia
     Dates: end: 20230422

REACTIONS (9)
  - Parkinsonism [Not Recovered/Not Resolved]
  - Sepsis [Fatal]
  - Escherichia bacteraemia [Unknown]
  - Cytokine release syndrome [Unknown]
  - Pneumonia pseudomonal [Unknown]
  - Immune effector cell-associated neurotoxicity syndrome [Unknown]
  - Haematoma [Unknown]
  - Fungal skin infection [Unknown]
  - Scedosporium infection [Unknown]

NARRATIVE: CASE EVENT DATE: 20230330
